FAERS Safety Report 12709372 (Version 1)
Quarter: 2016Q3

REPORT INFORMATION
  Report Type: Spontaneous
  Country: US (occurrence: US)
  Receive Date: 20160901
  Receipt Date: 20160901
  Transmission Date: 20161109
  Serious: No
  Sender: FDA-Public Use
  Company Number: US-ASTRAZENECA-2016SE56360

PATIENT
  Age: 18806 Day
  Sex: Female
  Weight: 63.5 kg

DRUGS (2)
  1. ALBUTEROL. [Concomitant]
     Active Substance: ALBUTEROL
     Indication: PNEUMONIA
     Dosage: 8.5 GRAMS/NET
     Dates: start: 20160321
  2. PULMICORT FLEXHALER [Suspect]
     Active Substance: BUDESONIDE
     Indication: BRONCHIAL HYPERREACTIVITY
     Dosage: 180 MCG 225 MG ONE PUFF TWICE A DAY
     Route: 055
     Dates: start: 20160512

REACTIONS (8)
  - Cough [Unknown]
  - Pneumonia [Unknown]
  - Drug ineffective [Unknown]
  - Migraine with aura [Unknown]
  - Dyspnoea [Unknown]
  - Product odour abnormal [Unknown]
  - Off label use [Unknown]
  - Device failure [Unknown]

NARRATIVE: CASE EVENT DATE: 20160321
